FAERS Safety Report 8108879-7 (Version None)
Quarter: 2012Q1

REPORT INFORMATION
  Report Type: 
  Country: None (occurrence: None)
  Receive Date: 20120202
  Receipt Date: 20120126
  Transmission Date: 20120608
  Serious: Yes (Other)
  Sender: FDA-Public Use
  Company Number: US-GLAXOSMITHKLINE-A0963528A

PATIENT
  Age: 75 Year
  Sex: Male

DRUGS (5)
  1. LIPITOR [Concomitant]
  2. AMIODARONE HCL [Concomitant]
  3. AVODART [Suspect]
     Indication: BENIGN PROSTATIC HYPERPLASIA
     Dosage: .5MG UNKNOWN
     Route: 048
     Dates: start: 20080101
  4. GLIMEPIRIDE [Concomitant]
  5. ALTACE [Concomitant]

REACTIONS (2)
  - PROSTATE CANCER METASTATIC [None]
  - PROSTATIC SPECIFIC ANTIGEN INCREASED [None]
